FAERS Safety Report 25152149 (Version 1)
Quarter: 2025Q2

REPORT INFORMATION
  Report Type: Spontaneous
  Country: GB (occurrence: GB)
  Receive Date: 20250402
  Receipt Date: 20250402
  Transmission Date: 20250716
  Serious: Yes (Other)
  Sender: INSUD PHARMA
  Company Number: GB-INSUD PHARMA-2503GB02450

PATIENT

DRUGS (1)
  1. ACYCLOVIR [Suspect]
     Active Substance: ACYCLOVIR
     Indication: Herpes zoster
     Route: 048

REACTIONS (3)
  - Neurotoxicity [Recovered/Resolved]
  - Acute psychosis [Recovered/Resolved]
  - Encephalopathy [Recovered/Resolved]
